FAERS Safety Report 5418593-4 (Version None)
Quarter: 2007Q3

REPORT INFORMATION
  Report Type: 
  Country: None (occurrence: None)
  Receive Date: 20070817
  Receipt Date: 20070809
  Transmission Date: 20080115
  Serious: Yes (Hospitalization)
  Sender: FDA-Public Use
  Company Number: US-PFIZER INC-2006126505

PATIENT
  Sex: Female
  Weight: 52.6 kg

DRUGS (19)
  1. SUNITINIB MALATE [Suspect]
     Indication: PANCREATIC CARCINOMA
     Route: 048
  2. XELODA [Suspect]
     Indication: PANCREATIC CARCINOMA
     Route: 048
  3. KYTRIL [Concomitant]
     Route: 048
  4. ZOFRAN [Concomitant]
     Route: 048
     Dates: start: 20060913
  5. REGLAN [Concomitant]
     Route: 048
     Dates: start: 20051101
  6. LASIX [Concomitant]
     Route: 048
     Dates: start: 20061006, end: 20061012
  7. SPIRONOLACTONE [Concomitant]
     Route: 048
     Dates: start: 20061006, end: 20061012
  8. SPIRONOLACTONE [Concomitant]
     Route: 048
     Dates: start: 20060913, end: 20060927
  9. CENTRUM SILVER [Concomitant]
     Route: 048
     Dates: start: 19960101
  10. TYLENOL [Concomitant]
     Route: 048
     Dates: start: 19960101
  11. POLYETHYLENE GLYCOL [Concomitant]
     Dosage: TEXT:3350 NF
     Route: 048
     Dates: start: 20051101
  12. MORPHINE SULFATE [Concomitant]
     Indication: BREAKTHROUGH PAIN
     Route: 048
     Dates: start: 20060308
  13. ENULOSE [Concomitant]
     Dosage: TEXT:10 GM/ML
     Route: 048
     Dates: start: 20060913
  14. COLACE [Concomitant]
     Route: 048
     Dates: start: 20051101
  15. ATENOLOL [Concomitant]
     Route: 048
     Dates: start: 20060913
  16. NORVASC [Concomitant]
     Route: 048
     Dates: start: 20061004
  17. MORPHINE SULFATE [Concomitant]
     Route: 048
     Dates: start: 20060913
  18. PROMETHAZINE [Concomitant]
     Dates: start: 20061006
  19. ALLOPURINOL [Concomitant]
     Route: 048
     Dates: start: 20061013

REACTIONS (1)
  - RENAL FAILURE [None]
